FAERS Safety Report 6935864-0 (Version None)
Quarter: 2010Q3

REPORT INFORMATION
  Report Type: 
  Country: None (occurrence: None)
  Receive Date: 20100823
  Receipt Date: 20100819
  Transmission Date: 20110219
  Serious: Yes (Hospitalization)
  Sender: FDA-Public Use
  Company Number: JP-SANOFI-AVENTIS-2010SA038540

PATIENT
  Age: 69 Year
  Sex: Female
  Weight: 60.5 kg

DRUGS (10)
  1. CLEXANE [Suspect]
     Indication: ABDOMINAL OPERATION
     Route: 058
     Dates: start: 20100421, end: 20100421
  2. CLEXANE [Suspect]
     Route: 058
     Dates: start: 20100422, end: 20100427
  3. PRORENAL [Concomitant]
     Dosage: DOSAGE UNKNOWN
     Route: 048
     Dates: start: 20100415
  4. TENORMIN [Concomitant]
     Route: 048
     Dates: start: 20100415
  5. AMLODIPINE BESYLATE [Concomitant]
     Route: 048
     Dates: start: 20100415
  6. ALFACALCIDOL [Concomitant]
     Route: 048
     Dates: start: 20100415
  7. MEVALOTIN [Concomitant]
     Route: 048
     Dates: start: 20100415
  8. HALCION [Concomitant]
     Route: 048
     Dates: start: 20100415
  9. HERBAL PREPARATION [Concomitant]
     Route: 048
     Dates: start: 20100415
  10. ANTITHROMBOTIC AGENTS [Concomitant]
     Indication: THROMBOSIS PROPHYLAXIS
     Route: 042
     Dates: start: 20100419, end: 20100420

REACTIONS (5)
  - ALANINE AMINOTRANSFERASE INCREASED [None]
  - ASPARTATE AMINOTRANSFERASE INCREASED [None]
  - BLOOD ALKALINE PHOSPHATASE INCREASED [None]
  - GAMMA-GLUTAMYLTRANSFERASE INCREASED [None]
  - HEPATIC FUNCTION ABNORMAL [None]
